FAERS Safety Report 12002093 (Version 1)
Quarter: 2016Q1

REPORT INFORMATION
  Report Type: Report from Study
  Country: MX (occurrence: MX)
  Receive Date: 20160204
  Receipt Date: 20160204
  Transmission Date: 20160526
  Serious: Yes (Disabling)
  Sender: FDA-Public Use
  Company Number: MX-AMGEN-MEXSL2016011282

PATIENT
  Age: 78 Year
  Sex: Female
  Weight: 58.5 kg

DRUGS (1)
  1. PROLIA [Suspect]
     Active Substance: DENOSUMAB
     Indication: OSTEOPOROSIS
     Dosage: UNK UNK, Q6MO
     Route: 058
     Dates: start: 201501

REACTIONS (1)
  - Burning sensation [Recovered/Resolved with Sequelae]

NARRATIVE: CASE EVENT DATE: 201501
